FAERS Safety Report 4887864-2 (Version None)
Quarter: 2006Q1

REPORT INFORMATION
  Report Type: 
  Country: None (occurrence: None)
  Receive Date: 20060123
  Receipt Date: 20050218
  Transmission Date: 20060701
  Serious: Yes (Hospitalization)
  Sender: FDA-Public Use
  Company Number: US-MERCK-0502USA02954

PATIENT
  Age: 52 Year
  Sex: Female
  Weight: 64 kg

DRUGS (7)
  1. VIOXX [Suspect]
     Indication: ARTHRITIS
     Route: 048
     Dates: start: 19990501, end: 20040101
  2. PREDNISONE [Concomitant]
     Indication: ARTHRITIS
     Route: 065
  3. SYNTHROID [Concomitant]
     Route: 065
  4. LIPITOR [Concomitant]
     Route: 065
  5. OMEPRAZOLE [Concomitant]
     Route: 065
  6. ZYRTEC [Concomitant]
     Route: 065
  7. DETROL [Concomitant]
     Route: 065

REACTIONS (2)
  - OVERDOSE [None]
  - TRANSIENT ISCHAEMIC ATTACK [None]
